FAERS Safety Report 9556176 (Version 1)
Quarter: 2013Q3

REPORT INFORMATION
  Report Type: Spontaneous
  Country: GB (occurrence: GB)
  Receive Date: 20130926
  Receipt Date: 20130926
  Transmission Date: 20140515
  Serious: Yes (Other)
  Sender: FDA-Public Use
  Company Number: GB-JNJFOC-20130914228

PATIENT
  Age: 74 Year
  Sex: Female
  Weight: 55 kg

DRUGS (4)
  1. XARELTO [Suspect]
     Indication: THROMBOSIS PROPHYLAXIS
     Route: 048
     Dates: start: 20130820, end: 20130828
  2. CO-CARELDOPA [Concomitant]
     Route: 065
  3. PARACETAMOL [Concomitant]
     Route: 065
  4. ROPINIROLE [Concomitant]
     Route: 065

REACTIONS (2)
  - Pulmonary embolism [Recovering/Resolving]
  - Confusional state [Unknown]
